FAERS Safety Report 6704550-4 (Version None)
Quarter: 2010Q2

REPORT INFORMATION
  Report Type: 
  Country: None (occurrence: None)
  Receive Date: 20100430
  Receipt Date: 20100426
  Transmission Date: 20101027
  Serious: Yes (Hospitalization)
  Sender: FDA-Public Use
  Company Number: PHHO2009DE14652

PATIENT
  Sex: Male
  Weight: 102.5 kg

DRUGS (5)
  1. ALISKIREN [Suspect]
     Indication: CARDIAC FAILURE
     Dosage: OPEN LABEL
     Route: 048
     Dates: end: 20091125
  2. BLINDED ALISKIREN ALI+TAB+CF [Suspect]
     Dosage: NO TREATMENT
  3. BLINDED ENALAPRIL COMP-ENA+ [Suspect]
     Dosage: NO TREATMENT
  4. BLINDED NO TREATMENT RECEIVED NOMED [Suspect]
     Dosage: NO TREATMENT
  5. COMPARATOR ENALAPRIL [Suspect]
     Indication: CARDIAC FAILURE
     Dosage: OPEN LABEL
     Route: 048
     Dates: end: 20091125

REACTIONS (3)
  - CIRCULATORY COLLAPSE [None]
  - DISEASE PROGRESSION [None]
  - SEPSIS [None]
